FAERS Safety Report 25013000 (Version 1)
Quarter: 2025Q1

REPORT INFORMATION
  Report Type: Spontaneous
  Country: US (occurrence: US)
  Receive Date: 20250226
  Receipt Date: 20250226
  Transmission Date: 20250409
  Serious: Yes (Other)
  Sender: MYLAN
  Company Number: US-MYLANLABS-2025M1016110

PATIENT
  Age: 4 Decade
  Sex: Female

DRUGS (64)
  1. METHOTREXATE [Suspect]
     Active Substance: METHOTREXATE
     Indication: Chronic cutaneous lupus erythematosus
  2. METHOTREXATE [Suspect]
     Active Substance: METHOTREXATE
     Route: 065
  3. METHOTREXATE [Suspect]
     Active Substance: METHOTREXATE
     Route: 065
  4. METHOTREXATE [Suspect]
     Active Substance: METHOTREXATE
  5. DOXAZOSIN [Suspect]
     Active Substance: DOXAZOSIN MESYLATE
     Indication: Chronic cutaneous lupus erythematosus
  6. DOXAZOSIN [Suspect]
     Active Substance: DOXAZOSIN MESYLATE
     Indication: Raynaud^s phenomenon
     Route: 065
  7. DOXAZOSIN [Suspect]
     Active Substance: DOXAZOSIN MESYLATE
     Route: 065
  8. DOXAZOSIN [Suspect]
     Active Substance: DOXAZOSIN MESYLATE
  9. SILDENAFIL [Suspect]
     Active Substance: SILDENAFIL
     Indication: Chronic cutaneous lupus erythematosus
  10. SILDENAFIL [Suspect]
     Active Substance: SILDENAFIL
     Indication: Raynaud^s phenomenon
     Route: 065
  11. SILDENAFIL [Suspect]
     Active Substance: SILDENAFIL
     Route: 065
  12. SILDENAFIL [Suspect]
     Active Substance: SILDENAFIL
  13. DAPSONE [Suspect]
     Active Substance: DAPSONE
     Indication: Chronic cutaneous lupus erythematosus
  14. DAPSONE [Suspect]
     Active Substance: DAPSONE
     Route: 065
  15. DAPSONE [Suspect]
     Active Substance: DAPSONE
     Route: 065
  16. DAPSONE [Suspect]
     Active Substance: DAPSONE
  17. LENALIDOMIDE [Suspect]
     Active Substance: LENALIDOMIDE
     Indication: Chronic cutaneous lupus erythematosus
  18. LENALIDOMIDE [Suspect]
     Active Substance: LENALIDOMIDE
     Route: 065
  19. LENALIDOMIDE [Suspect]
     Active Substance: LENALIDOMIDE
     Route: 065
  20. LENALIDOMIDE [Suspect]
     Active Substance: LENALIDOMIDE
  21. HYDROXYCHLOROQUINE [Suspect]
     Active Substance: HYDROXYCHLOROQUINE
     Indication: Chronic cutaneous lupus erythematosus
  22. HYDROXYCHLOROQUINE [Suspect]
     Active Substance: HYDROXYCHLOROQUINE
     Route: 065
  23. HYDROXYCHLOROQUINE [Suspect]
     Active Substance: HYDROXYCHLOROQUINE
     Route: 065
  24. HYDROXYCHLOROQUINE [Suspect]
     Active Substance: HYDROXYCHLOROQUINE
  25. CHLOROQUINE [Suspect]
     Active Substance: CHLOROQUINE
     Indication: Chronic cutaneous lupus erythematosus
  26. CHLOROQUINE [Suspect]
     Active Substance: CHLOROQUINE
     Route: 065
  27. CHLOROQUINE [Suspect]
     Active Substance: CHLOROQUINE
     Route: 065
  28. CHLOROQUINE [Suspect]
     Active Substance: CHLOROQUINE
  29. AZATHIOPRINE [Suspect]
     Active Substance: AZATHIOPRINE
     Indication: Chronic cutaneous lupus erythematosus
  30. AZATHIOPRINE [Suspect]
     Active Substance: AZATHIOPRINE
     Route: 065
  31. AZATHIOPRINE [Suspect]
     Active Substance: AZATHIOPRINE
     Route: 065
  32. AZATHIOPRINE [Suspect]
     Active Substance: AZATHIOPRINE
  33. RUXOLITINIB [Suspect]
     Active Substance: RUXOLITINIB
     Indication: Chronic cutaneous lupus erythematosus
  34. RUXOLITINIB [Suspect]
     Active Substance: RUXOLITINIB
     Route: 061
  35. RUXOLITINIB [Suspect]
     Active Substance: RUXOLITINIB
     Route: 061
  36. RUXOLITINIB [Suspect]
     Active Substance: RUXOLITINIB
  37. BELIMUMAB [Suspect]
     Active Substance: BELIMUMAB
     Indication: Chronic cutaneous lupus erythematosus
  38. BELIMUMAB [Suspect]
     Active Substance: BELIMUMAB
     Route: 065
  39. BELIMUMAB [Suspect]
     Active Substance: BELIMUMAB
     Route: 065
  40. BELIMUMAB [Suspect]
     Active Substance: BELIMUMAB
  41. TOFACITINIB [Suspect]
     Active Substance: TOFACITINIB
     Indication: Chronic cutaneous lupus erythematosus
  42. TOFACITINIB [Suspect]
     Active Substance: TOFACITINIB
     Route: 065
  43. TOFACITINIB [Suspect]
     Active Substance: TOFACITINIB
     Route: 065
  44. TOFACITINIB [Suspect]
     Active Substance: TOFACITINIB
  45. BOTULINUM TOXIN NOS [Suspect]
     Active Substance: BOTULINUM TOXIN NOS
     Indication: Chronic cutaneous lupus erythematosus
  46. BOTULINUM TOXIN NOS [Suspect]
     Active Substance: BOTULINUM TOXIN NOS
     Route: 065
  47. BOTULINUM TOXIN NOS [Suspect]
     Active Substance: BOTULINUM TOXIN NOS
     Route: 065
  48. BOTULINUM TOXIN NOS [Suspect]
     Active Substance: BOTULINUM TOXIN NOS
  49. MYCOPHENOLATE MOFETIL [Concomitant]
     Active Substance: MYCOPHENOLATE MOFETIL
     Indication: Chronic cutaneous lupus erythematosus
     Dosage: 1 GRAM, BID
  50. MYCOPHENOLATE MOFETIL [Concomitant]
     Active Substance: MYCOPHENOLATE MOFETIL
     Dosage: 1 GRAM, BID
     Route: 065
  51. MYCOPHENOLATE MOFETIL [Concomitant]
     Active Substance: MYCOPHENOLATE MOFETIL
     Dosage: 1 GRAM, BID
     Route: 065
  52. MYCOPHENOLATE MOFETIL [Concomitant]
     Active Substance: MYCOPHENOLATE MOFETIL
     Dosage: 1 GRAM, BID
  53. ASPIRIN [Concomitant]
     Active Substance: ASPIRIN
     Indication: Chronic cutaneous lupus erythematosus
     Dosage: 81 MILLIGRAM, QD
  54. ASPIRIN [Concomitant]
     Active Substance: ASPIRIN
     Indication: Raynaud^s phenomenon
     Dosage: 81 MILLIGRAM, QD
     Route: 065
  55. ASPIRIN [Concomitant]
     Active Substance: ASPIRIN
     Dosage: 81 MILLIGRAM, QD
     Route: 065
  56. ASPIRIN [Concomitant]
     Active Substance: ASPIRIN
     Dosage: 81 MILLIGRAM, QD
  57. PENTOXIFYLLINE [Concomitant]
     Active Substance: PENTOXIFYLLINE
     Indication: Chronic cutaneous lupus erythematosus
     Dosage: 800 MILLIGRAM, BID
  58. PENTOXIFYLLINE [Concomitant]
     Active Substance: PENTOXIFYLLINE
     Dosage: 800 MILLIGRAM, BID
     Route: 065
  59. PENTOXIFYLLINE [Concomitant]
     Active Substance: PENTOXIFYLLINE
     Dosage: 800 MILLIGRAM, BID
     Route: 065
  60. PENTOXIFYLLINE [Concomitant]
     Active Substance: PENTOXIFYLLINE
     Dosage: 800 MILLIGRAM, BID
  61. RITUXIMAB [Concomitant]
     Active Substance: RITUXIMAB
     Indication: Autoimmune haemolytic anaemia
  62. RITUXIMAB [Concomitant]
     Active Substance: RITUXIMAB
     Route: 065
  63. RITUXIMAB [Concomitant]
     Active Substance: RITUXIMAB
     Route: 065
  64. RITUXIMAB [Concomitant]
     Active Substance: RITUXIMAB

REACTIONS (2)
  - Drug ineffective for unapproved indication [Unknown]
  - Off label use [Unknown]
